FAERS Safety Report 4363447-8 (Version None)
Quarter: 2004Q2

REPORT INFORMATION
  Report Type: 
  Country: None (occurrence: None)
  Receive Date: 20040524
  Receipt Date: 20040514
  Transmission Date: 20050107
  Serious: Yes (Hospitalization)
  Sender: FDA-Public Use
  Company Number: US-GLAXOSMITHKLINE-B0333338A

PATIENT
  Sex: Male

DRUGS (3)
  1. VINORELBINE TARTRATE [Suspect]
     Indication: PROSTATE CANCER
     Dosage: 20MGM2 CYCLIC
     Route: 042
  2. DOCETAXEL [Suspect]
     Indication: PROSTATE CANCER
     Dosage: 25MGM2 CYCLIC
     Route: 042
  3. DEXAMETHASONE [Concomitant]
     Indication: PREMEDICATION
     Dosage: 4MG SEE DOSAGE TEXT
     Route: 048

REACTIONS (2)
  - INTESTINAL SPASM [None]
  - IRRITABLE BOWEL SYNDROME [None]
